FAERS Safety Report 12853875 (Version 1)
Quarter: 2016Q4

REPORT INFORMATION
  Report Type: Report from Study
  Country: BR (occurrence: BR)
  Receive Date: 20161017
  Receipt Date: 20161017
  Transmission Date: 20170207
  Serious: Yes (Other)
  Sender: FDA-Public Use
  Company Number: BR-ELI_LILLY_AND_COMPANY-BR201610002555

PATIENT
  Age: 67 Year
  Sex: Male

DRUGS (4)
  1. FLOGORAL [Concomitant]
     Indication: PRODUCT USED FOR UNKNOWN INDICATION
     Dosage: UNK UNK, UNKNOWN
  2. SODIUM BICARBONATE. [Concomitant]
     Active Substance: SODIUM BICARBONATE
     Indication: FUNGAL INFECTION
  3. NISTATINA [Concomitant]
     Active Substance: NYSTATIN
     Indication: APHTHOUS ULCER
  4. CETUXIMAB [Suspect]
     Active Substance: CETUXIMAB
     Indication: HEAD AND NECK CANCER
     Dosage: UNK, EVERY 15 DAYS
     Route: 065
     Dates: start: 201606

REACTIONS (1)
  - Catheter site injury [Not Recovered/Not Resolved]

NARRATIVE: CASE EVENT DATE: 201609
